FAERS Safety Report 24314427 (Version 1)
Quarter: 2024Q3

REPORT INFORMATION
  Report Type: Spontaneous
  Country: US (occurrence: US)
  Receive Date: 20240913
  Receipt Date: 20240913
  Transmission Date: 20241016
  Serious: No
  Sender: ROCHE
  Company Number: US-ROCHE-10000074736

PATIENT
  Age: 34 Year
  Sex: Male

DRUGS (4)
  1. MYCOPHENOLATE MOFETIL [Suspect]
     Active Substance: MYCOPHENOLATE MOFETIL
     Indication: Prophylaxis against transplant rejection
     Route: 065
  2. SACUBITRIL [Concomitant]
     Active Substance: SACUBITRIL
  3. VALSARTAN [Concomitant]
     Active Substance: VALSARTAN
  4. SPIRONOLACTONE [Concomitant]
     Active Substance: SPIRONOLACTONE

REACTIONS (2)
  - Systemic viral infection [Unknown]
  - Leukopenia [Unknown]
